FAERS Safety Report 9134679 (Version 2)
Quarter: 2013Q2

REPORT INFORMATION
  Report Type: Spontaneous
  Country: US (occurrence: US)
  Receive Date: 20130304
  Receipt Date: 20130529
  Transmission Date: 20140414
  Serious: No
  Sender: FDA-Public Use
  Company Number: US-PFIZER INC-2013071473

PATIENT
  Age: 65 Year
  Sex: Female
  Weight: 70.75 kg

DRUGS (6)
  1. ADVIL [Suspect]
     Indication: MIGRAINE
     Dosage: 200 MG, AS NEEDED
  2. ADVIL [Suspect]
     Dosage: 200 MG, TWO TIMES A DAY
     Dates: start: 2012
  3. ADVIL [Suspect]
     Dosage: 200 MG, ONCE
     Dates: start: 2013
  4. ADVIL [Suspect]
     Dosage: 200 MG, ONCE
     Dates: start: 201302
  5. ADVIL [Suspect]
     Dosage: UNK
  6. AZITHROMYCIN [Suspect]
     Dosage: UNK

REACTIONS (1)
  - Tinnitus [Not Recovered/Not Resolved]
